FAERS Safety Report 8319617-7 (Version None)
Quarter: 2012Q2

REPORT INFORMATION
  Report Type: 
  Country: None (occurrence: None)
  Receive Date: 20120427
  Receipt Date: 20120418
  Transmission Date: 20120825
  Serious: Yes (Hospitalization)
  Sender: FDA-Public Use
  Company Number: PHHO2012US006111

PATIENT
  Sex: Female
  Weight: 70.5 kg

DRUGS (16)
  1. AMLODIPINE [Concomitant]
     Dosage: 10 MG, QD
  2. AMLODIPINE [Concomitant]
     Dosage: 10 MG, QD
  3. VALTREX [Concomitant]
     Dosage: 500 MG, PRN
  4. CITRACAL [Concomitant]
     Dosage: UNK
  5. ACYCLOVIR [Concomitant]
     Dosage: UNK
  6. ACYCLOVIR [Concomitant]
     Dosage: 100 MG, Q8H
  7. AFINITOR [Suspect]
     Indication: COLORECTAL CANCER
     Dosage: 10 MG, QD
     Route: 048
     Dates: start: 20120315, end: 20120406
  8. NORCO [Concomitant]
  9. LORAZEPAM [Concomitant]
  10. SENNA [Concomitant]
     Dosage: 2 DF, DAILY
  11. OXYCODONE HCL [Concomitant]
  12. FOLFOX-6 [Concomitant]
     Indication: COLORECTAL CANCER
     Dosage: UNK
     Dates: start: 20120315, end: 20120329
  13. AVASTIN [Concomitant]
     Indication: COLORECTAL CANCER
     Dosage: UNK
     Dates: start: 20120315
  14. ZOFRAN [Concomitant]
  15. LEVOTHYROXINE SODIUM [Concomitant]
     Dosage: 50 UG, QD
  16. FOSAMAX [Concomitant]
     Dosage: QW ON MONDAYS

REACTIONS (2)
  - FEBRILE NEUTROPENIA [None]
  - MUCOSAL INFLAMMATION [None]
